FAERS Safety Report 22370610 (Version 1)
Quarter: 2023Q2

REPORT INFORMATION
  Report Type: Report from Study
  Country: CA (occurrence: CA)
  Receive Date: 20230526
  Receipt Date: 20230526
  Transmission Date: 20230721
  Serious: Yes (Other)
  Sender: FDA-Public Use
  Company Number: CA-GILEAD-2023-0613618

PATIENT
  Age: 50 Year
  Sex: Female

DRUGS (24)
  1. SACITUZUMAB GOVITECAN-HZIY [Suspect]
     Active Substance: SACITUZUMAB GOVITECAN-HZIY
     Indication: Triple negative breast cancer
     Dosage: 681 MG
     Route: 042
     Dates: start: 20221212
  2. SACITUZUMAB GOVITECAN-HZIY [Suspect]
     Active Substance: SACITUZUMAB GOVITECAN-HZIY
     Dosage: 687 MG
     Route: 042
  3. SACITUZUMAB GOVITECAN-HZIY [Suspect]
     Active Substance: SACITUZUMAB GOVITECAN-HZIY
     Dosage: 549 MG ON D1 + D8
     Route: 042
     Dates: start: 20230112, end: 20230119
  4. SACITUZUMAB GOVITECAN-HZIY [Suspect]
     Active Substance: SACITUZUMAB GOVITECAN-HZIY
     Dosage: 549 MG
     Route: 042
     Dates: start: 20230208, end: 20230215
  5. SACITUZUMAB GOVITECAN-HZIY [Suspect]
     Active Substance: SACITUZUMAB GOVITECAN-HZIY
     Dosage: 549 MG
     Route: 042
     Dates: start: 20230303
  6. SACITUZUMAB GOVITECAN-HZIY [Suspect]
     Active Substance: SACITUZUMAB GOVITECAN-HZIY
     Dosage: 549 MG
     Route: 042
  7. DECADRON [Concomitant]
     Active Substance: DEXAMETHASONE
     Dosage: 12 MG
     Route: 048
  8. DECADRON [Concomitant]
     Active Substance: DEXAMETHASONE
     Dosage: 8 MG
     Route: 048
  9. ONDANSETRON [Concomitant]
     Active Substance: ONDANSETRON
     Dosage: 8 MG
     Route: 048
  10. ONDANSETRON [Concomitant]
     Active Substance: ONDANSETRON
     Dosage: 8 MG PO (PRE-MEDICATION PRIOR TO TRODELVY)
  11. ACETAMINOPHEN [Concomitant]
     Active Substance: ACETAMINOPHEN
     Dosage: 650 MG
     Route: 048
  12. ACETAMINOPHEN [Concomitant]
     Active Substance: ACETAMINOPHEN
     Dosage: 650 MG PO (PRE-MEDICATION PRIOR TO TRODELVY)
  13. ACETAMINOPHEN [Concomitant]
     Active Substance: ACETAMINOPHEN
     Dosage: 60 MG PO (PRE-MEDICATION PRIOR TO TRODELVY)
  14. ACETAMINOPHEN [Concomitant]
     Active Substance: ACETAMINOPHEN
     Dosage: 60 MG PO (PRE-MEDICATION PRIOR TO TRODELVY)
  15. ACETAMINOPHEN [Concomitant]
     Active Substance: ACETAMINOPHEN
     Dosage: 60 MG PO (PRE-MEDICATION PRIOR TO TRODELVY)
  16. ACETAMINOPHEN [Concomitant]
     Active Substance: ACETAMINOPHEN
     Dosage: 60 MG PO (PRE-MEDICATION PRIOR TO TRODELVY
  17. ACETAMINOPHEN [Concomitant]
     Active Substance: ACETAMINOPHEN
     Dosage: 60 MG PO (PRE-MEDICATION PRIOR TO TRODELVY
  18. DIPHENHYDRAMINE [Concomitant]
     Active Substance: DIPHENHYDRAMINE
     Dosage: 50 MG
     Route: 048
  19. DIPHENHYDRAMINE [Concomitant]
     Active Substance: DIPHENHYDRAMINE
     Dosage: 50 MG PO (PRE-MEDICATION PRIOR TO TRODELVY)
  20. DIPHENHYDRAMINE [Concomitant]
     Active Substance: DIPHENHYDRAMINE
     Dosage: 50 MG PO (PRE-MEDICATION PRIOR TO TRODELVY)
  21. DIPHENHYDRAMINE [Concomitant]
     Active Substance: DIPHENHYDRAMINE
     Dosage: 50 MG PO (PRE-MEDICATION PRIOR TO TRODELVY)
  22. DIPHENHYDRAMINE [Concomitant]
     Active Substance: DIPHENHYDRAMINE
     Dosage: 50 MG PO (PRE-MEDICATION PRIOR TO TRODELVY)
  23. DIPHENHYDRAMINE [Concomitant]
     Active Substance: DIPHENHYDRAMINE
     Dosage: 50 MG PO (PRE-MEDICATION PRIOR TO TRODELVY)
  24. DIPHENHYDRAMINE [Concomitant]
     Active Substance: DIPHENHYDRAMINE
     Dosage: 50 MG PO (PRE-MEDICATION PRIOR TO TRODELVY)

REACTIONS (6)
  - Neutropenia [Unknown]
  - Disease progression [Not Recovered/Not Resolved]
  - Inappropriate schedule of product administration [Unknown]
  - Weight fluctuation [Unknown]
  - Weight increased [Unknown]
  - Diarrhoea [Recovered/Resolved]

NARRATIVE: CASE EVENT DATE: 20230101
